FAERS Safety Report 14340397 (Version 2)
Quarter: 2018Q1

REPORT INFORMATION
  Report Type: Report from Study
  Country: None (occurrence: US)
  Receive Date: 20180101
  Receipt Date: 20180327
  Transmission Date: 20180509
  Serious: Yes (Hospitalization)
  Sender: FDA-Public Use
  Company Number: US-ABBVIE-16K-163-1812364-00

PATIENT
  Age: 34 Year
  Sex: Female

DRUGS (3)
  1. HUMIRA [Suspect]
     Active Substance: ADALIMUMAB
     Route: 058
  2. HUMIRA [Suspect]
     Active Substance: ADALIMUMAB
     Dosage: LOADING DOSES
     Route: 058
  3. HUMIRA [Suspect]
     Active Substance: ADALIMUMAB
     Indication: CROHN^S DISEASE
     Route: 058
     Dates: start: 200807, end: 2015

REACTIONS (26)
  - Exposure during pregnancy [Unknown]
  - Food intolerance [Unknown]
  - Incorrect dose administered [Unknown]
  - Fear [Unknown]
  - Wrong technique in product usage process [Unknown]
  - Wrong technique in product usage process [Unknown]
  - Injection site hyperaesthesia [Unknown]
  - Injection site pain [Unknown]
  - Hyperventilation [Unknown]
  - Live birth [Unknown]
  - Injection site bruising [Unknown]
  - Discomfort [Unknown]
  - Injection site haemorrhage [Unknown]
  - Intestinal obstruction [Unknown]
  - Frequent bowel movements [Unknown]
  - Injection site pain [Recovered/Resolved]
  - Therapeutic response shortened [Unknown]
  - Device issue [Unknown]
  - Tachyphrenia [Unknown]
  - Malaise [Unknown]
  - Crohn^s disease [Unknown]
  - Colitis ulcerative [Unknown]
  - Crying [Unknown]
  - Incorrect dose administered [Unknown]
  - Abdominal pain [Unknown]
  - Dyspnoea [Unknown]

NARRATIVE: CASE EVENT DATE: 2013
